FAERS Safety Report 6487261-2 (Version None)
Quarter: 2009Q4

REPORT INFORMATION
  Report Type: 
  Country: None (occurrence: None)
  Receive Date: 20091210
  Receipt Date: 20091201
  Transmission Date: 20100525
  Serious: Yes (Death, Life-Threatening)
  Sender: FDA-Public Use
  Company Number: AT-JNJFOC-20091200774

PATIENT
  Age: 59 Year
  Sex: Male

DRUGS (4)
  1. REMICADE [Suspect]
     Indication: CROHN'S DISEASE
     Route: 042
     Dates: start: 20050617, end: 20060928
  2. CORTISON [Concomitant]
  3. MOVALIS [Concomitant]
     Dosage: DOSE: 2 TABLETS PER DAY
  4. BUSCOPAN [Concomitant]

REACTIONS (3)
  - COLON CANCER METASTATIC [None]
  - ILEUS [None]
  - MYELODYSPLASTIC SYNDROME [None]
